FAERS Safety Report 25708107 (Version 2)
Quarter: 2025Q3

REPORT INFORMATION
  Report Type: Spontaneous
  Country: JP (occurrence: JP)
  Receive Date: 20250820
  Receipt Date: 20250824
  Transmission Date: 20251021
  Serious: Yes (Death, Other)
  Sender: SANOFI AVENTIS
  Company Number: JP-SAKK-2025SA246632AA

PATIENT
  Age: 9 Decade
  Sex: Male

DRUGS (3)
  1. THYMOGLOBULINE [Suspect]
     Active Substance: LAPINE T-LYMPHOCYTE IMMUNE GLOBULIN
     Indication: Aplastic anaemia
     Route: 041
  2. CYCLOSPORINE [Suspect]
     Active Substance: CYCLOSPORINE
     Indication: Aplastic anaemia
     Route: 065
  3. ELTROMBOPAG OLAMINE [Suspect]
     Active Substance: ELTROMBOPAG OLAMINE
     Indication: Aplastic anaemia
     Route: 065

REACTIONS (9)
  - Cardiovascular disorder [Fatal]
  - Gastric ischaemia [Fatal]
  - Faeces discoloured [Fatal]
  - Vomiting [Fatal]
  - Abdominal pain upper [Fatal]
  - Haematemesis [Fatal]
  - General physical health deterioration [Fatal]
  - Gastric haemorrhage [Fatal]
  - Pulmonary haemorrhage [Fatal]
